FAERS Safety Report 17641599 (Version 1)
Quarter: 2020Q2

REPORT INFORMATION
  Report Type: Other
  Country: FR (occurrence: FR)
  Receive Date: 20200408
  Receipt Date: 20200408
  Transmission Date: 20200713
  Serious: Yes (Hospitalization)
  Sender: FDA-Public Use
  Company Number: FR-CELLTRION INC.-2020FR021272

PATIENT

DRUGS (3)
  1. TRUXIMA [Suspect]
     Active Substance: RITUXIMAB-ABBS
     Indication: LYMPHOMA
     Dosage: 650 MG, TOTAL
     Route: 041
     Dates: start: 20200222, end: 20200224
  2. CARBOPLATINE ACCORD [Suspect]
     Active Substance: CARBOPLATIN
     Indication: LYMPHOMA
     Dosage: 500 MG, TOTAL
     Route: 041
     Dates: start: 20200222, end: 20200224
  3. CYTARABINE ACCORD [Suspect]
     Active Substance: CYTARABINE
     Indication: LYMPHOMA
     Dosage: 1700 MG, TOTAL
     Route: 041
     Dates: start: 20200222, end: 20200224

REACTIONS (3)
  - Cerebellar ataxia [Recovered/Resolved]
  - Vertigo [Recovered/Resolved]
  - Overdose [Unknown]

NARRATIVE: CASE EVENT DATE: 20200226
